FAERS Safety Report 11131512 (Version 1)
Quarter: 2015Q2

REPORT INFORMATION
  Report Type: Spontaneous
  Country: US (occurrence: US)
  Receive Date: 20150522
  Receipt Date: 20150522
  Transmission Date: 20150821
  Serious: No
  Sender: FDA-Public Use
  Company Number: US-LUNDBECK-DKLU1111437

PATIENT
  Sex: Female
  Weight: 50 kg

DRUGS (6)
  1. AZOPT [Concomitant]
     Active Substance: BRINZOLAMIDE
     Indication: GLAUCOMA
     Route: 047
  2. NORTHERA [Suspect]
     Active Substance: DROXIDOPA
     Route: 048
     Dates: start: 20150227
  3. NORTHERA [Suspect]
     Active Substance: DROXIDOPA
     Route: 048
     Dates: start: 20150227
  4. LUMIGAN [Concomitant]
     Active Substance: BIMATOPROST
     Indication: MACULAR DEGENERATION
     Route: 047
  5. UNSPECIFIED INJECTION [Concomitant]
     Active Substance: UNSPECIFIED INGREDIENT
     Indication: PRODUCT USED FOR UNKNOWN INDICATION
     Route: 047
  6. NORTHERA [Suspect]
     Active Substance: DROXIDOPA
     Indication: PARKINSON^S DISEASE
     Route: 048
     Dates: start: 20150227

REACTIONS (1)
  - Drug ineffective [Unknown]
